FAERS Safety Report 4766215-8 (Version None)
Quarter: 2005Q3

REPORT INFORMATION
  Report Type: 
  Country: None (occurrence: None)
  Receive Date: 20050912
  Receipt Date: 20050512
  Transmission Date: 20060218
  Serious: Yes (Hospitalization)
  Sender: FDA-Public Use
  Company Number: US-MERCK-0505USA01677

PATIENT
  Age: 35 Year
  Sex: Female
  Weight: 130 kg

DRUGS (12)
  1. VIOXX [Suspect]
     Indication: ARTHRITIS
     Route: 048
     Dates: start: 20000918, end: 20001001
  2. VIOXX [Suspect]
     Route: 048
     Dates: start: 20001031, end: 20030701
  3. VIOXX [Suspect]
     Indication: ARTHRALGIA
     Route: 048
     Dates: start: 20000918, end: 20001001
  4. VIOXX [Suspect]
     Route: 048
     Dates: start: 20001031, end: 20030701
  5. ADVIL [Concomitant]
     Indication: ARTHRITIS
     Route: 048
     Dates: start: 19930101
  6. ASPIRIN [Concomitant]
     Indication: ARTHRITIS
     Route: 048
     Dates: start: 19930101, end: 20001104
  7. ASPIRIN [Concomitant]
     Route: 048
     Dates: start: 20001105
  8. VICODIN [Concomitant]
     Indication: ARTHRITIS
     Route: 048
     Dates: start: 19930101
  9. CATAPRES [Concomitant]
     Indication: HYPERTENSION
     Route: 048
     Dates: start: 19991101, end: 20010101
  10. ESTRADIOL [Concomitant]
     Indication: HORMONE REPLACEMENT THERAPY
     Route: 048
     Dates: start: 20000601, end: 20030101
  11. XANAX [Concomitant]
     Indication: ANXIETY
     Route: 048
     Dates: start: 19870101
  12. INTEGRILIN [Suspect]
     Route: 048
     Dates: start: 20001101

REACTIONS (26)
  - ABDOMINAL PAIN UPPER [None]
  - BLOOD PRESSURE DECREASED [None]
  - CHEST DISCOMFORT [None]
  - CHEST PAIN [None]
  - CHRONIC OBSTRUCTIVE PULMONARY DISEASE [None]
  - CORONARY ARTERY DISEASE [None]
  - DEPRESSION [None]
  - DIZZINESS [None]
  - DRUG HYPERSENSITIVITY [None]
  - DYSPNOEA [None]
  - FATIGUE [None]
  - GASTRIC DISORDER [None]
  - HEART RATE IRREGULAR [None]
  - HERPES VIRUS INFECTION [None]
  - LIMB INJURY [None]
  - MYOCARDIAL INFARCTION [None]
  - NASOPHARYNGITIS [None]
  - NON-CARDIAC CHEST PAIN [None]
  - OEDEMA PERIPHERAL [None]
  - PAIN IN JAW [None]
  - SHOULDER PAIN [None]
  - SLEEP APNOEA SYNDROME [None]
  - VENTRICULAR TACHYCARDIA [None]
  - VERTIGO [None]
  - VISUAL ACUITY REDUCED [None]
  - WEIGHT INCREASED [None]
